FAERS Safety Report 24546372 (Version 1)
Quarter: 2024Q4

REPORT INFORMATION
  Report Type: Spontaneous
  Country: BR (occurrence: BR)
  Receive Date: 20241024
  Receipt Date: 20241024
  Transmission Date: 20250115
  Serious: Yes (Other)
  Sender: BOEHRINGER INGELHEIM
  Company Number: BR-Komodo Health-a23aa000003lPyvAAE

PATIENT
  Sex: Female
  Weight: 63 kg

DRUGS (8)
  1. ATROVENT [Suspect]
     Active Substance: IPRATROPIUM BROMIDE
     Indication: Asthmatic crisis
     Dosage: 0.25 MG/ML, 30 DROPS AT NIGHT
     Dates: start: 20241011, end: 20241011
  2. ATROVENT [Suspect]
     Active Substance: IPRATROPIUM BROMIDE
     Dosage: 0.25 MG/ML, 90 DROPS EACH DAY (3 INHALATIONS DURING THE DAY WITH 30 DROPS EACH)
     Dates: start: 20241012, end: 20241015
  3. ATROVENT [Suspect]
     Active Substance: IPRATROPIUM BROMIDE
     Dosage: 0.25 MG/ML, 10 DROPS
     Dates: start: 20241016
  4. ATROVENT [Suspect]
     Active Substance: IPRATROPIUM BROMIDE
     Dosage: 0.25 MG/ML, SHE NORMALLY USED 20 DROPS
  5. ATROVENT [Suspect]
     Active Substance: IPRATROPIUM BROMIDE
     Dosage: 30 DROPS DAILY ABOUT 3 TIMES A DAY (UNIT DOSE IS NOT CLEAR)
     Route: 055
  6. SPIRIVA [Suspect]
     Active Substance: TIOTROPIUM BROMIDE MONOHYDRATE
     Indication: Asthmatic crisis
     Dosage: 2 PUFFS ONCE A DAY
  7. PREDNISOLONE [Concomitant]
     Active Substance: PREDNISOLONE
     Indication: Product used for unknown indication
  8. BECLOMETHASONE DIPROPIONATE [Concomitant]
     Active Substance: BECLOMETHASONE DIPROPIONATE
     Indication: Product used for unknown indication

REACTIONS (6)
  - Asthmatic crisis [Unknown]
  - Asthmatic crisis [Unknown]
  - Intentional product use issue [Unknown]
  - Memory impairment [Unknown]
  - Dyspnoea exertional [Unknown]
  - Cough [Unknown]
